APPROVED DRUG PRODUCT: ASTEPRO ALLERGY
Active Ingredient: AZELASTINE HYDROCHLORIDE
Strength: 0.2055MG/SPRAY
Dosage Form/Route: SPRAY, METERED;NASAL
Application: N213872 | Product #001
Applicant: BAYER HEALTHCARE CONSUMER CARE
Approved: Jun 17, 2021 | RLD: Yes | RS: Yes | Type: OTC

PATENTS:
Patent 8071073 | Expires: Jun 4, 2028